FAERS Safety Report 14874670 (Version 2)
Quarter: 2018Q2

REPORT INFORMATION
  Report Type: Spontaneous
  Country: US (occurrence: US)
  Receive Date: 20180510
  Receipt Date: 20180604
  Transmission Date: 20180711
  Serious: Yes (Other)
  Sender: FDA-Public Use
  Company Number: US-COOPERSURGICAL, INC.-US-2018CPS031855

PATIENT

DRUGS (1)
  1. PARAGARD T 380A [Suspect]
     Active Substance: COPPER
     Indication: CONTRACEPTION
     Dosage: UNK
     Route: 015
     Dates: start: 20160608, end: 20180501

REACTIONS (8)
  - Vaginal haemorrhage [Not Recovered/Not Resolved]
  - Pregnancy with contraceptive device [None]
  - Thrombosis [Not Recovered/Not Resolved]
  - Hypomenorrhoea [Unknown]
  - Premature rupture of membranes [Unknown]
  - Abortion spontaneous [Unknown]
  - Menstruation delayed [Unknown]
  - Abdominal pain [Not Recovered/Not Resolved]

NARRATIVE: CASE EVENT DATE: 20160608
